FAERS Safety Report 17241527 (Version 1)
Quarter: 2020Q1

REPORT INFORMATION
  Report Type: Spontaneous
  Country: US (occurrence: US)
  Receive Date: 20200107
  Receipt Date: 20200107
  Transmission Date: 20200409
  Serious: Yes (Hospitalization)
  Sender: FDA-Public Use
  Company Number: US-ROCHE-2516629

PATIENT
  Age: 74 Year
  Sex: Male

DRUGS (8)
  1. INSPRA [Concomitant]
     Active Substance: EPLERENONE
  2. TRAVATAN Z [Concomitant]
     Active Substance: TRAVOPROST
  3. ESBRIET [Suspect]
     Active Substance: PIRFENIDONE
     Indication: IDIOPATHIC PULMONARY FIBROSIS
     Route: 048
     Dates: start: 20180411
  4. ASPIRIN. [Concomitant]
     Active Substance: ASPIRIN
  5. ENTRESTO [Concomitant]
     Active Substance: SACUBITRIL\VALSARTAN
  6. LASIX [Concomitant]
     Active Substance: FUROSEMIDE
  7. ZOCOR [Concomitant]
     Active Substance: SIMVASTATIN
  8. COREG [Concomitant]
     Active Substance: CARVEDILOL
     Route: 065

REACTIONS (2)
  - Dyspnoea [Unknown]
  - Cardiac failure congestive [Unknown]

NARRATIVE: CASE EVENT DATE: 201912
